FAERS Safety Report 18793436 (Version 3)
Quarter: 2021Q1

REPORT INFORMATION
  Report Type: Report from Study
  Country: CN (occurrence: CN)
  Receive Date: 20210127
  Receipt Date: 20210211
  Transmission Date: 20210419
  Serious: Yes (Hospitalization)
  Sender: FDA-Public Use
  Company Number: CN-REGENERON PHARMACEUTICALS, INC.-2020-92609

PATIENT

DRUGS (8)
  1. NIFEDIPINE. [Concomitant]
     Active Substance: NIFEDIPINE
     Dosage: 10 MG, OTO
     Route: 048
     Dates: start: 20201027, end: 20201027
  2. CEMIPLIMAB [Suspect]
     Active Substance: CEMIPLIMAB
     Indication: LUNG ADENOCARCINOMA STAGE IV
     Dosage: 350 MG, Q3W
     Route: 042
     Dates: start: 20200619, end: 20200911
  3. ESTAZOLAM. [Concomitant]
     Active Substance: ESTAZOLAM
     Indication: INSOMNIA
     Dosage: 2 MG, OTO
     Route: 048
     Dates: start: 20201025, end: 20201025
  4. BICYCLOL [Concomitant]
     Active Substance: BICYCLOL
     Indication: ASPARTATE AMINOTRANSFERASE INCREASED
     Dosage: 50 MG, TID
     Route: 048
     Dates: start: 20201023, end: 20201031
  5. PEMETREXED. [Suspect]
     Active Substance: PEMETREXED
     Indication: LUNG ADENOCARCINOMA STAGE IV
     Dosage: 500 MG/M2, Q3W
     Route: 042
     Dates: start: 20200619, end: 20200911
  6. NIFEDIPINE. [Concomitant]
     Active Substance: NIFEDIPINE
     Indication: HYPERTENSION
     Dosage: 10 MG, OTO
     Route: 048
     Dates: start: 20201025, end: 20201025
  7. CARBOPLATIN. [Suspect]
     Active Substance: CARBOPLATIN
     Indication: LUNG ADENOCARCINOMA STAGE IV
     Dosage: AUC OF 5 MG/ML/MINUTE, Q3W
     Route: 042
     Dates: start: 20200619, end: 20200822
  8. BICYCLOL [Concomitant]
     Active Substance: BICYCLOL
     Indication: ALANINE AMINOTRANSFERASE
     Dosage: 25 MG, TID
     Route: 048
     Dates: start: 20201113, end: 20201117

REACTIONS (2)
  - Hepatic haemorrhage [Recovering/Resolving]
  - Drug-induced liver injury [Recovering/Resolving]

NARRATIVE: CASE EVENT DATE: 20201124
